FAERS Safety Report 23660919 (Version 3)
Quarter: 2024Q2

REPORT INFORMATION
  Report Type: Report from Study
  Country: GB (occurrence: GB)
  Receive Date: 20240322
  Receipt Date: 20240425
  Transmission Date: 20240715
  Serious: Yes (Death, Hospitalization, Other)
  Sender: FDA-Public Use
  Company Number: GB-CELLTRION INC.-2024GB007062

PATIENT

DRUGS (17)
  1. BEVACIZUMAB [Suspect]
     Active Substance: BEVACIZUMAB
     Indication: Hepatocellular carcinoma
     Dosage: 1200 MG
     Route: 042
     Dates: start: 20230111
  2. ATEZOLIZUMAB [Suspect]
     Active Substance: ATEZOLIZUMAB
     Indication: Hepatocellular carcinoma
     Dosage: ON 22/NOV/2023, RECEIVED MOST RECENT DOSE PRIOR AE/SAE IS 1200MG; EVERY 3 WEEKS
     Route: 041
     Dates: start: 20230111
  3. ATEZOLIZUMAB [Suspect]
     Active Substance: ATEZOLIZUMAB
     Dosage: 1200 MG
     Route: 041
     Dates: start: 20231122
  4. BUDESONIDE\FORMOTEROL FUMARATE DIHYDRATE [Concomitant]
     Active Substance: BUDESONIDE\FORMOTEROL FUMARATE DIHYDRATE
     Dosage: UNK, BID
     Dates: start: 1993
  5. CANDESARTAN [Concomitant]
     Active Substance: CANDESARTAN
     Dosage: 8 MG, 1 DAY
     Dates: start: 20230705, end: 20240307
  6. CLARITHROMYCIN [Concomitant]
     Active Substance: CLARITHROMYCIN
     Dosage: 500 MG, 0.5 DAY
     Dates: start: 20240227, end: 20240304
  7. CLOTRIMAZOLE [Concomitant]
     Active Substance: CLOTRIMAZOLE
     Dosage: EVERY TIME AS REQUIRED
     Dates: start: 20230820, end: 20240307
  8. AMOXICILLIN\CLAVULANATE POTASSIUM [Concomitant]
     Active Substance: AMOXICILLIN\CLAVULANATE POTASSIUM
     Dosage: 625 MG, 0.33 DAY
     Dates: start: 20240228, end: 20240306
  9. DALTEPARIN [Concomitant]
     Active Substance: DALTEPARIN
     Dosage: 1800 UNITS EVERY DAY
     Dates: start: 20231219, end: 20240307
  10. FUROSEMIDE [Concomitant]
     Active Substance: FUROSEMIDE
     Dosage: 40 MG, 1 DAY
     Dates: start: 20230624, end: 20240307
  11. MOMETASONE [Concomitant]
     Active Substance: MOMETASONE
     Dosage: UNK, 1 DAY
     Dates: start: 20231220
  12. NITROFURANTOIN [Concomitant]
     Active Substance: NITROFURANTOIN
     Dosage: 50 MG, 1 DAY
     Dates: start: 20230808
  13. OMEPRAZOLE [Concomitant]
     Active Substance: OMEPRAZOLE
     Dosage: UNK, 1 DAY
     Dates: start: 202204
  14. PREDNISOLONE [Concomitant]
     Active Substance: PREDNISOLONE
     Dosage: 40 MG, 1 DAY
     Dates: start: 20240207, end: 20240307
  15. PREDNISOLONE [Concomitant]
     Active Substance: PREDNISOLONE
     Dosage: 60 MG, QD
     Dates: start: 20240124, end: 20240206
  16. RENAPRO [Concomitant]
     Dosage: UNK, 1 DAY
     Dates: start: 202211, end: 20240307
  17. ALBUTEROL [Concomitant]
     Active Substance: ALBUTEROL
     Dosage: UNK
     Dates: start: 1979, end: 20240307

REACTIONS (8)
  - Death [Fatal]
  - Blood bilirubin increased [Unknown]
  - Hypophosphataemia [Recovered/Resolved]
  - Dyspnoea [Recovered/Resolved]
  - Pneumonia [Unknown]
  - Rash [Recovered/Resolved]
  - Embolism [Unknown]
  - Intentional product use issue [Unknown]

NARRATIVE: CASE EVENT DATE: 20231128
